FAERS Safety Report 24766244 (Version 1)
Quarter: 2024Q4

REPORT INFORMATION
  Report Type: Spontaneous
  Country: TH (occurrence: TH)
  Receive Date: 20241223
  Receipt Date: 20241223
  Transmission Date: 20250115
  Serious: Yes (Other)
  Sender: PERRIGO
  Company Number: TH-PERRIGO-24TH011687

PATIENT
  Age: 38 Year
  Sex: Female

DRUGS (2)
  1. PSEUDOEPHEDRINE HYDROCHLORIDE [Suspect]
     Active Substance: PSEUDOEPHEDRINE HYDROCHLORIDE
     Indication: Prophylaxis
     Dosage: UNKNOWN, UNKNOWN
     Route: 048
  2. PSEUDOEPHEDRINE HYDROCHLORIDE [Suspect]
     Active Substance: PSEUDOEPHEDRINE HYDROCHLORIDE
     Indication: Sinusitis

REACTIONS (2)
  - Generalised bullous fixed drug eruption [Recovering/Resolving]
  - Product use in unapproved indication [Recovered/Resolved]
